FAERS Safety Report 11820500 (Version 2)
Quarter: 2016Q1

REPORT INFORMATION
  Report Type: Spontaneous
  Country: US (occurrence: US)
  Receive Date: 20151210
  Receipt Date: 20160202
  Transmission Date: 20160525
  Serious: No
  Sender: FDA-Public Use
  Company Number: US-JNJFOC-20150611111

PATIENT
  Age: 63 Year
  Sex: Male

DRUGS (1)
  1. IMBRUVICA [Suspect]
     Active Substance: IBRUTINIB
     Indication: CHRONIC LYMPHOCYTIC LEUKAEMIA
     Route: 048
     Dates: start: 20141001, end: 2015

REACTIONS (3)
  - White blood cell count decreased [Not Recovered/Not Resolved]
  - Infection [Not Recovered/Not Resolved]
  - Neutrophil count abnormal [Unknown]

NARRATIVE: CASE EVENT DATE: 20150513
